FAERS Safety Report 10098287 (Version 2)
Quarter: 2014Q2

REPORT INFORMATION
  Report Type: Spontaneous
  Country: US (occurrence: None)
  Receive Date: 20140421
  Receipt Date: 20140522
  Transmission Date: 20141212
  Serious: Yes (Other)
  Sender: FDA-Public Use
  Company Number: ZYD-14-AE-115

PATIENT
  Age: 76 Year
  Sex: Male

DRUGS (4)
  1. TAMSULOSIN [Suspect]
     Indication: DYSURIA
     Dates: start: 20140411
  2. PIOGLITAZONE [Concomitant]
  3. JANUVIA [Concomitant]
  4. SIMVASTATIN [Concomitant]

REACTIONS (1)
  - Blood glucose increased [None]
